FAERS Safety Report 5430838-3 (Version None)
Quarter: 2007Q3

REPORT INFORMATION
  Report Type: 
  Country: None (occurrence: None)
  Receive Date: 20070830
  Receipt Date: 20061211
  Transmission Date: 20080115
  Serious: No
  Sender: FDA-Public Use
  Company Number: A0631136A

PATIENT
  Sex: Female

DRUGS (10)
  1. WELLBUTRIN XL [Suspect]
     Indication: DRUG USE FOR UNKNOWN INDICATION
     Dosage: 150MG PER DAY
     Route: 048
     Dates: start: 20061111
  2. PAXIL [Suspect]
     Indication: DEPRESSION
     Route: 048
  3. COUMADIN [Concomitant]
  4. CLARITIN [Concomitant]
  5. SPIRIVA [Concomitant]
  6. DEMADEX [Concomitant]
  7. PREVACID [Concomitant]
  8. SINGULAIR [Concomitant]
  9. MAGNESIUM SULFATE [Concomitant]
  10. VITAMIN D [Concomitant]

REACTIONS (5)
  - AMNESIA [None]
  - GASTROOESOPHAGEAL REFLUX DISEASE [None]
  - MUSCLE SPASMS [None]
  - NAUSEA [None]
  - WEIGHT INCREASED [None]
